FAERS Safety Report 5797341-2 (Version None)
Quarter: 2008Q2

REPORT INFORMATION
  Report Type: 
  Country: None (occurrence: None)
  Receive Date: 20080630
  Receipt Date: 20080618
  Transmission Date: 20081010
  Serious: Yes (Hospitalization)
  Sender: FDA-Public Use
  Company Number: B0526777A

PATIENT
  Age: 17 Year
  Sex: Female

DRUGS (2)
  1. PAROXETINE HYDROCHLORIDE [Suspect]
     Indication: DEPRESSION
  2. ALPRAZOLAM [Suspect]
     Indication: DEPRESSION

REACTIONS (3)
  - OVERDOSE [None]
  - PARTNER STRESS [None]
  - SUICIDE ATTEMPT [None]
